FAERS Safety Report 9142223 (Version 2)
Quarter: 2013Q2

REPORT INFORMATION
  Report Type: Spontaneous
  Country: US (occurrence: US)
  Receive Date: 20130305
  Receipt Date: 20130506
  Transmission Date: 20140414
  Serious: No
  Sender: FDA-Public Use
  Company Number: US-AMGEN-USASP2013011411

PATIENT
  Age: 49 Year
  Sex: Female

DRUGS (1)
  1. ENBREL [Suspect]
     Indication: PSORIASIS
     Dosage: 50 MG, BIWEEKLY
     Dates: start: 20121129

REACTIONS (4)
  - Pain in extremity [Recovered/Resolved]
  - Sinusitis [Recovered/Resolved]
  - Fungal skin infection [Recovered/Resolved]
  - Injection site pain [Not Recovered/Not Resolved]
